FAERS Safety Report 8365865-X (Version None)
Quarter: 2012Q2

REPORT INFORMATION
  Report Type: 
  Country: None (occurrence: None)
  Receive Date: 20120517
  Receipt Date: 20120510
  Transmission Date: 20120825
  Serious: Yes (Hospitalization)
  Sender: FDA-Public Use
  Company Number: FR-GENZYME-CAMP-1002249

PATIENT

DRUGS (3)
  1. FLUDARABINE PHOSPHATE [Concomitant]
     Indication: CHRONIC LYMPHOCYTIC LEUKAEMIA
     Dosage: 70 MG, UNK,28 CYCLES OF 3 DAY EACH
     Route: 048
     Dates: start: 20080416, end: 20080906
  2. CYCLOPHOSPHAMIDE [Concomitant]
     Indication: CHRONIC LYMPHOCYTIC LEUKAEMIA
     Dosage: 450 MG, UNK, 28 CYCLES OF 3 DAY EACH
     Route: 048
     Dates: start: 20080416, end: 20080906
  3. MABCAMPATH [Suspect]
     Indication: CHRONIC LYMPHOCYTIC LEUKAEMIA
     Dosage: 30 MG, UNK,28 CYCLES OF 3 DAY EACH
     Route: 058
     Dates: start: 20080416, end: 20080906

REACTIONS (2)
  - LYMPHOPENIA [None]
  - PNEUMONIA [None]
